FAERS Safety Report 7605216-9 (Version None)
Quarter: 2011Q3

REPORT INFORMATION
  Report Type: 
  Country: None (occurrence: None)
  Receive Date: 20110705
  Receipt Date: 20110622
  Transmission Date: 20111222
  Serious: Yes (Hospitalization)
  Sender: FDA-Public Use
  Company Number: JP-1186590

PATIENT
  Age: 71 Year
  Sex: Male

DRUGS (1)
  1. FLUORESCITE [Suspect]
     Indication: ANGIOGRAM RETINA
     Dosage: (4ML INTRAVENOUS BOLUS)
     Route: 040
     Dates: start: 20110603, end: 20110603

REACTIONS (7)
  - BLOOD PRESSURE DECREASED [None]
  - RESPIRATORY ARREST [None]
  - PULSE ABSENT [None]
  - ANAPHYLACTIC SHOCK [None]
  - NAUSEA [None]
  - COUGH [None]
  - CHILLS [None]
